FAERS Safety Report 17710018 (Version 7)
Quarter: 2020Q2

REPORT INFORMATION
  Report Type: Spontaneous
  Country: CA (occurrence: CA)
  Receive Date: 20200427
  Receipt Date: 20200629
  Transmission Date: 20200714
  Serious: Yes (Other)
  Sender: FDA-Public Use
  Company Number: CA-CELLTRION INC.-2019CA020736

PATIENT

DRUGS (11)
  1. INFLECTRA [Suspect]
     Active Substance: INFLIXIMAB-DYYB
     Indication: CROHN^S DISEASE
     Dosage: 300 MG, AT 0, 2, 6 WEEKS, THEN EVERY 8 WEEKS
     Route: 042
     Dates: start: 20170525, end: 2017
  2. INFLECTRA [Suspect]
     Active Substance: INFLIXIMAB-DYYB
     Dosage: 300 MG, EVERY 7 WEEKS
     Route: 042
     Dates: start: 20200320, end: 20200320
  3. VITAMIN B12 [Concomitant]
     Active Substance: CYANOCOBALAMIN
     Dosage: 1 TABLET, DAILY
  4. INFLECTRA [Suspect]
     Active Substance: INFLIXIMAB-DYYB
     Dosage: 300 MG, EVERY 7 WEEKS
     Route: 042
     Dates: start: 20190224, end: 20190224
  5. INFLECTRA [Suspect]
     Active Substance: INFLIXIMAB-DYYB
     Dosage: 300 MG, EVERY 7 WEEKS
     Route: 042
     Dates: start: 20190411, end: 20190411
  6. IMURAN [Concomitant]
     Active Substance: AZATHIOPRINE
     Dosage: 500 MG, DAILY
     Route: 065
  7. INFLECTRA [Suspect]
     Active Substance: INFLIXIMAB-DYYB
     Dosage: 300 MG, EVERY 7 WEEKS
     Route: 042
     Dates: start: 20200515, end: 20200515
  8. IMURAN [Concomitant]
     Active Substance: AZATHIOPRINE
     Dosage: 750 MG, DAILY
  9. INFLECTRA [Suspect]
     Active Substance: INFLIXIMAB-DYYB
     Dosage: 300 MG, EVERY 7 WEEKS
     Route: 042
     Dates: start: 2017
  10. INFLECTRA [Suspect]
     Active Substance: INFLIXIMAB-DYYB
     Dosage: 300 MG, EVERY 7 WEEKS
     Route: 042
     Dates: start: 20200619
  11. VITAMIN B12 [Concomitant]
     Active Substance: CYANOCOBALAMIN
     Dosage: UNK, WEEKLY (ONCE A WEEK)

REACTIONS (3)
  - Maternal exposure during pregnancy [Recovered/Resolved]
  - Vasa praevia [Recovered/Resolved]
  - Off label use [Unknown]

NARRATIVE: CASE EVENT DATE: 2017
